FAERS Safety Report 11965850 (Version 1)
Quarter: 2016Q1

REPORT INFORMATION
  Report Type: Spontaneous
  Country: PK (occurrence: PK)
  Receive Date: 20160127
  Receipt Date: 20160127
  Transmission Date: 20160526
  Serious: Yes (Death)
  Sender: FDA-Public Use
  Company Number: PK-ROCHE-1700390

PATIENT
  Age: 84 Year
  Sex: Female

DRUGS (1)
  1. HERCEPTIN [Suspect]
     Active Substance: TRASTUZUMAB
     Indication: BREAST CANCER METASTATIC
     Route: 042
     Dates: start: 201510

REACTIONS (2)
  - Death [Fatal]
  - Palpitations [Recovering/Resolving]

NARRATIVE: CASE EVENT DATE: 201512
